FAERS Safety Report 21849122 (Version 2)
Quarter: 2023Q2

REPORT INFORMATION
  Report Type: Spontaneous
  Country: US (occurrence: US)
  Receive Date: 20230111
  Receipt Date: 20230602
  Transmission Date: 20230722
  Serious: Yes (Hospitalization, Other)
  Sender: FDA-Public Use
  Company Number: US-MLMSERVICE-20221228-4007358-1

PATIENT
  Age: 58 Year
  Sex: Female

DRUGS (2)
  1. ACETAMINOPHEN [Suspect]
     Active Substance: ACETAMINOPHEN
     Indication: Pain
     Dosage: COPIOUS AMOUNTS OF EXTRA-STRENGTH ACETAMINOPHEN.
     Route: 048
  2. ACETAMINOPHEN [Suspect]
     Active Substance: ACETAMINOPHEN
     Indication: Abdominal pain

REACTIONS (8)
  - Liver injury [Recovered/Resolved]
  - Toxicity to various agents [Recovered/Resolved]
  - Encephalopathy [Recovering/Resolving]
  - Acute kidney injury [Recovered/Resolved]
  - Hypertransaminasaemia [Recovered/Resolved]
  - Condition aggravated [Recovered/Resolved]
  - Ascites [Recovered/Resolved]
  - Intentional overdose [Recovered/Resolved]
